FAERS Safety Report 9927232 (Version 2)
Quarter: 2014Q1

REPORT INFORMATION
  Report Type: Spontaneous
  Country: US (occurrence: US)
  Receive Date: 20140226
  Receipt Date: 20140226
  Transmission Date: 20141002
  Serious: No
  Sender: FDA-Public Use
  Company Number: US-AMGEN-USASP2014000693

PATIENT
  Age: 45 Year
  Sex: Female

DRUGS (3)
  1. ENBREL [Suspect]
     Indication: PSORIATIC ARTHROPATHY
     Dosage: 50 MG, QWK
     Route: 058
     Dates: start: 201308
  2. SYNTHROID [Concomitant]
     Dosage: 50 MU, QD
     Route: 048
  3. VOLTAREN                           /00372301/ [Concomitant]
     Dosage: 1% 4 G, AS NECESSARY EVERY 8 HOURS
     Route: 061

REACTIONS (2)
  - Pain [Not Recovered/Not Resolved]
  - Joint stiffness [Not Recovered/Not Resolved]
